FAERS Safety Report 7866352-5 (Version None)
Quarter: 2011Q4

REPORT INFORMATION
  Report Type: 
  Country: None (occurrence: None)
  Receive Date: 20111028
  Receipt Date: 20110603
  Transmission Date: 20120403
  Serious: No
  Sender: FDA-Public Use
  Company Number: US-GLAXOSMITHKLINE-A0930167A

PATIENT
  Age: 83 Year
  Sex: Male

DRUGS (9)
  1. ASCORBIC ACID [Concomitant]
  2. ADVAIR DISKUS 100/50 [Suspect]
     Indication: CHRONIC OBSTRUCTIVE PULMONARY DISEASE
     Dosage: 1PUFF TWICE PER DAY
     Route: 055
     Dates: start: 20010401, end: 20101001
  3. SPIRIVA [Concomitant]
  4. ALDACTONE [Concomitant]
  5. AVODART [Concomitant]
  6. ASPIRIN [Concomitant]
  7. CALCIUM CARBONATE [Concomitant]
  8. VITAMIN D [Concomitant]
  9. VITAMIN E [Concomitant]

REACTIONS (1)
  - DRY MOUTH [None]
